FAERS Safety Report 9925930 (Version 2)
Quarter: 2014Q1

REPORT INFORMATION
  Report Type: Spontaneous
  Country: DE (occurrence: DE)
  Receive Date: 20140226
  Receipt Date: 20140325
  Transmission Date: 20141002
  Serious: Yes (Life-Threatening)
  Sender: FDA-Public Use
  Company Number: DE-PFIZER INC-2014053402

PATIENT
  Age: 46 Year
  Sex: Male

DRUGS (2)
  1. LYRICA [Suspect]
     Indication: INTENTIONAL DRUG MISUSE
     Dosage: 400 MG, SINGLE (100 MG X 4)
     Route: 048
  2. HEROIN [Interacting]
     Dosage: UNK

REACTIONS (4)
  - Drug abuse [Unknown]
  - Drug interaction [Unknown]
  - Dyspnoea [Unknown]
  - Oxygen saturation decreased [Unknown]
